FAERS Safety Report 7101990-9 (Version None)
Quarter: 2010Q4

REPORT INFORMATION
  Report Type: 
  Country: None (occurrence: None)
  Receive Date: 20101115
  Receipt Date: 20101104
  Transmission Date: 20110411
  Serious: Yes (Hospitalization, Other)
  Sender: FDA-Public Use
  Company Number: US-ELI_LILLY_AND_COMPANY-US201011001857

PATIENT
  Age: 52 Year
  Sex: Male

DRUGS (4)
  1. BYETTA [Suspect]
     Dates: start: 20100106
  2. SAXAGLIPTIN [Concomitant]
     Dates: start: 20100106
  3. AVANDIA [Concomitant]
  4. METFORMIN HCL [Concomitant]

REACTIONS (1)
  - PANCREATITIS ACUTE [None]
